FAERS Safety Report 7657330-X (Version None)
Quarter: 2011Q3

REPORT INFORMATION
  Report Type: 
  Country: None (occurrence: None)
  Receive Date: 20110804
  Receipt Date: 20110803
  Transmission Date: 20111222
  Serious: Yes (Life-Threatening, Hospitalization)
  Sender: FDA-Public Use
  Company Number: FR-ABBOTT-11P-056-0709156-00

PATIENT

DRUGS (5)
  1. KALETRA [Suspect]
     Indication: MATERNAL EXPOSURE DURING PREGNANCY
     Route: 064
  2. SAQUINAVIR [Suspect]
     Indication: MATERNAL EXPOSURE DURING PREGNANCY
     Route: 064
  3. LAMIVUDINE [Suspect]
     Indication: MATERNAL EXPOSURE DURING PREGNANCY
     Route: 064
  4. ZIDOVUDINE [Suspect]
     Indication: MATERNAL EXPOSURE DURING PREGNANCY
     Route: 064
  5. KALETRA [Suspect]
     Indication: PROPHYLAXIS AGAINST HIV INFECTION

REACTIONS (7)
  - HYPERKALAEMIA [None]
  - MATERNAL EXPOSURE DURING PREGNANCY [None]
  - ADRENAL INSUFFICIENCY NEONATAL [None]
  - ENTEROCOLITIS [None]
  - PREMATURE BABY [None]
  - RENAL FAILURE [None]
  - HYPONATRAEMIA [None]
